FAERS Safety Report 8831698 (Version 2)
Quarter: 2012Q4

REPORT INFORMATION
  Report Type: 
  Country: IT (occurrence: IT)
  Receive Date: 20121009
  Receipt Date: 20121106
  Transmission Date: 20130627
  Serious: Yes (Hospitalization)
  Sender: FDA-Public Use
  Company Number: IT-009507513-1210ITA002557

PATIENT
  Age: 70 Year
  Sex: Female

DRUGS (9)
  1. LOSARTAN POTASSIUM [Suspect]
     Indication: HYPERTENSION
     Dosage: 100 mg, qd
     Route: 048
     Dates: start: 20120701, end: 20121001
  2. LASIX (FUROSEMIDE) [Suspect]
     Indication: HYPERTENSION
     Dosage: 25 mg, qd
     Route: 048
     Dates: start: 20120901, end: 20121001
  3. BISOPROLOL FUMARATE [Concomitant]
     Dosage: 0.5 posological units
  4. ALPRAZOLAM [Concomitant]
     Dosage: 15 Drops, UNK
  5. COUMADIN [Concomitant]
     Indication: ATRIAL FIBRILLATION
     Dosage: 5 mg, UNK
     Route: 048
  6. EUTIROX [Concomitant]
  7. EFEXOR [Concomitant]
  8. METFORAL [Concomitant]
     Indication: DIABETES MELLITUS
  9. AMOXICILLIN (+) CLAVULANATE POTASSIUM [Concomitant]
     Indication: TOOTH ABSCESS
     Dosage: 2 DF, UNK
     Dates: start: 20120927

REACTIONS (2)
  - Hypotension [Recovering/Resolving]
  - Hyperhidrosis [Recovering/Resolving]
